FAERS Safety Report 8964449 (Version 1)
Quarter: 2012Q4

REPORT INFORMATION
  Report Type: 
  Country: US (occurrence: US)
  Receive Date: 20121214
  Receipt Date: 20121214
  Transmission Date: 20130627
  Serious: No
  Sender: FDA-Public Use
  Company Number: US-GLAXOSMITHKLINE-A0991999A

PATIENT
  Age: 75 Year
  Sex: Male

DRUGS (7)
  1. AVODART [Suspect]
     Indication: PROSTATOMEGALY
     Dosage: .5MG Per day
     Route: 048
     Dates: start: 2007
  2. TAMSULOSIN [Concomitant]
  3. ATORVASTATIN [Concomitant]
  4. AMLODIPINE [Concomitant]
  5. METFORMIN [Concomitant]
  6. LANTUS [Concomitant]
  7. HYDROCHLOROTHIAZIDE [Concomitant]

REACTIONS (1)
  - Dry mouth [Not Recovered/Not Resolved]
